FAERS Safety Report 17596948 (Version 2)
Quarter: 2022Q1

REPORT INFORMATION
  Report Type: Spontaneous
  Country: CA (occurrence: CA)
  Receive Date: 20200330
  Receipt Date: 20220311
  Transmission Date: 20220423
  Serious: Yes (Other)
  Sender: FDA-Public Use
  Company Number: CA-SA-2020SA068521

PATIENT
  Age: 38 Year
  Sex: Female

DRUGS (9)
  1. ARAVA [Suspect]
     Active Substance: LEFLUNOMIDE
     Indication: Product used for unknown indication
     Route: 065
  2. HYDROXYCHLOROQUINE SULFATE [Suspect]
     Active Substance: HYDROXYCHLOROQUINE SULFATE
     Indication: Product used for unknown indication
     Route: 065
  3. METHOTREXATE [Suspect]
     Active Substance: METHOTREXATE
     Indication: Product used for unknown indication
     Dosage: 20.0 MG, QW
     Route: 065
  4. SULFASALAZINE [Suspect]
     Active Substance: SULFASALAZINE
     Indication: Product used for unknown indication
     Route: 065
  5. ACTEMRA [Suspect]
     Active Substance: TOCILIZUMAB
     Indication: Rheumatoid arthritis
     Route: 065
  6. CIMZIA [Suspect]
     Active Substance: CERTOLIZUMAB PEGOL
     Indication: Rheumatoid arthritis
     Dosage: DOSAGE FORM: SOLUTION SUBCUTANEOUS
     Route: 065
  7. ENBREL [Suspect]
     Active Substance: ETANERCEPT
     Indication: Product used for unknown indication
     Route: 065
  8. HUMIRA [Suspect]
     Active Substance: ADALIMUMAB
     Indication: Rheumatoid arthritis
     Dosage: DOSAGE FORM: SOLUTION SUBCUTANEOUS
     Route: 058
  9. RITUXAN [Suspect]
     Active Substance: RITUXIMAB
     Indication: Rheumatoid arthritis
     Dosage: DOSAGE FORM: SOLUTION INTRAVENOUS
     Route: 065

REACTIONS (8)
  - Anti-cyclic citrullinated peptide antibody positive [Unknown]
  - Arthralgia [Unknown]
  - C-reactive protein increased [Unknown]
  - Joint swelling [Unknown]
  - Rheumatoid arthritis [Unknown]
  - Rheumatoid factor positive [Unknown]
  - Therapeutic product effect decreased [Unknown]
  - Drug ineffective [Unknown]
